FAERS Safety Report 4498437-8 (Version None)
Quarter: 2004Q4

REPORT INFORMATION
  Report Type: 
  Country: None (occurrence: None)
  Receive Date: 20041105
  Receipt Date: 20041025
  Transmission Date: 20050328
  Serious: No
  Sender: FDA-Public Use
  Company Number: 2004GB02540

PATIENT
  Age: 89 Year
  Sex: Male

DRUGS (6)
  1. SEROQUEL [Suspect]
     Indication: AGGRESSION
     Dosage: 25 MG BID PO
     Route: 048
     Dates: start: 20040813, end: 20040819
  2. SEROQUEL [Suspect]
     Indication: AGITATION
     Dosage: 25 MG BID PO
     Route: 048
     Dates: start: 20040813, end: 20040819
  3. SEROQUEL [Suspect]
     Indication: DEMENTIA ALZHEIMER'S TYPE
     Dosage: 25 MG BID PO
     Route: 048
     Dates: start: 20040813, end: 20040819
  4. ZOPICLONE [Concomitant]
  5. LACTULOSE [Concomitant]
  6. DONEPEZIL HCL [Concomitant]

REACTIONS (1)
  - BILIRUBIN CONJUGATED INCREASED [None]
